FAERS Safety Report 20619497 (Version 1)
Quarter: 2022Q1

REPORT INFORMATION
  Report Type: Other
  Country: US (occurrence: None)
  Receive Date: 20220322
  Receipt Date: 20220322
  Transmission Date: 20220424
  Serious: Yes (Hospitalization)
  Sender: FDA-Public Use
  Company Number: US-ROCHE-3047560

PATIENT
  Sex: Female
  Weight: 57.658 kg

DRUGS (2)
  1. OCREVUS [Suspect]
     Active Substance: OCRELIZUMAB
     Indication: Relapsing multiple sclerosis
     Route: 042
  2. REMDESIVIR [Concomitant]
     Active Substance: REMDESIVIR

REACTIONS (1)
  - COVID-19 [Unknown]
